FAERS Safety Report 10741822 (Version 2)
Quarter: 2015Q1

REPORT INFORMATION
  Report Type: Spontaneous
  Country: CH (occurrence: CH)
  Receive Date: 20150127
  Receipt Date: 20150210
  Transmission Date: 20150721
  Serious: Yes (Death, Hospitalization, Other)
  Sender: FDA-Public Use
  Company Number: CH-INCYTE CORPORATION-2015IN000195

PATIENT
  Age: 59 Year
  Sex: Male

DRUGS (8)
  1. JAKAFI [Suspect]
     Active Substance: RUXOLITINIB
     Indication: MYELOFIBROSIS
     Dosage: 15 MG, BID
     Route: 065
     Dates: start: 20140323, end: 20150117
  2. LITALIR [Concomitant]
     Active Substance: HYDROXYUREA
     Indication: THROMBOCYTOSIS
     Route: 065
     Dates: start: 199805, end: 199904
  3. CLOPIDOGREL [Concomitant]
     Active Substance: CLOPIDOGREL BISULFATE
     Route: 065
  4. LITALIR [Concomitant]
     Active Substance: HYDROXYUREA
     Route: 065
     Dates: start: 20140219, end: 20150117
  5. CO-AMOXI -MEPHA [Concomitant]
     Indication: PRODUCT USED FOR UNKNOWN INDICATION
     Route: 065
  6. LITALIR [Concomitant]
     Active Substance: HYDROXYUREA
     Indication: PRODUCT USED FOR UNKNOWN INDICATION
     Route: 065
  7. CLOPIDOGREL [Concomitant]
     Active Substance: CLOPIDOGREL BISULFATE
     Indication: PRODUCT USED FOR UNKNOWN INDICATION
     Route: 065
  8. JAKAFI [Suspect]
     Active Substance: RUXOLITINIB
     Dosage: 20 MG, BID
     Route: 065
     Dates: start: 20141016, end: 20150117

REACTIONS (14)
  - Pulmonary tuberculosis [Fatal]
  - Superinfection bacterial [Fatal]
  - Acute respiratory failure [Unknown]
  - Anaemia [Unknown]
  - Thrombocytopenia [Unknown]
  - Pyrexia [Unknown]
  - Oxygen saturation decreased [Unknown]
  - Cardiac failure [Fatal]
  - Pleural effusion [Unknown]
  - Splenomegaly [Unknown]
  - Cardiac arrest [Fatal]
  - Pneumonia [Fatal]
  - Dyspnoea [Unknown]
  - Septic shock [Fatal]

NARRATIVE: CASE EVENT DATE: 201412
